FAERS Safety Report 8476634-4 (Version None)
Quarter: 2012Q2

REPORT INFORMATION
  Report Type: 
  Country: None (occurrence: None)
  Receive Date: 20120628
  Receipt Date: 20120621
  Transmission Date: 20120825
  Serious: Yes (Other)
  Sender: FDA-Public Use
  Company Number: ES-PFIZER INC-2012150515

PATIENT
  Age: 51 Year
  Sex: Male

DRUGS (5)
  1. FLUVOXAMINE MALEATE [Interacting]
     Indication: DEPRESSION
     Dosage: 100 MG, 3X/DAY
     Route: 048
     Dates: start: 20101126, end: 20120512
  2. CLOZAPINE [Concomitant]
     Dosage: UNK
     Route: 048
     Dates: start: 20120506
  3. ZYVOX [Suspect]
     Indication: STAPHYLOCOCCAL INFECTION
     Dosage: 600 MG, 2X/DAY
     Route: 048
     Dates: start: 20120329
  4. TOPAMAX [Concomitant]
     Dosage: UNK
     Route: 048
     Dates: start: 20100620
  5. TRAMADOL [Concomitant]
     Dosage: 50 MG, 3X/DAY
     Route: 048
     Dates: start: 20120410, end: 20120514

REACTIONS (3)
  - MANIA [None]
  - DRUG INTERACTION [None]
  - SEROTONIN SYNDROME [None]
